FAERS Safety Report 8384736-6 (Version None)
Quarter: 2012Q2

REPORT INFORMATION
  Report Type: 
  Country: None (occurrence: None)
  Receive Date: 20120524
  Receipt Date: 20120522
  Transmission Date: 20120825
  Serious: Yes (Disabling)
  Sender: FDA-Public Use
  Company Number: GB-PFIZER INC-2012123278

PATIENT
  Age: 40 Year
  Sex: Male
  Weight: 65 kg

DRUGS (1)
  1. VARENICLINE TARTRATE [Suspect]
     Dosage: UNK
     Route: 048
     Dates: start: 20120214, end: 20120303

REACTIONS (3)
  - RASH PRURITIC [None]
  - GENERALISED ERYTHEMA [None]
  - DERMATITIS ALLERGIC [None]
